FAERS Safety Report 6140591-6 (Version None)
Quarter: 2009Q2

REPORT INFORMATION
  Report Type: 
  Country: None (occurrence: None)
  Receive Date: 20090402
  Receipt Date: 20090324
  Transmission Date: 20091009
  Serious: Yes (Hospitalization)
  Sender: FDA-Public Use
  Company Number: JP-JNJFOC-20080800888

PATIENT
  Sex: Male

DRUGS (8)
  1. ITRACONAZOLE [Suspect]
     Indication: FEBRILE NEUTROPENIA
     Route: 048
  2. ITRACONAZOLE [Suspect]
     Indication: SYSTEMIC MYCOSIS
     Route: 048
  3. LASIX [Concomitant]
     Indication: EYELID OEDEMA
     Route: 048
  4. LASIX [Concomitant]
     Indication: OEDEMA PERIPHERAL
     Route: 048
  5. LASIX [Concomitant]
     Indication: OEDEMA
     Route: 042
  6. AMIGRAND [Concomitant]
     Indication: DECREASED APPETITE
     Route: 042
  7. FAROM [Concomitant]
     Indication: PNEUMONIA
     Route: 048
  8. SILECE [Concomitant]
     Indication: INSOMNIA
     Route: 048

REACTIONS (5)
  - FATIGUE [None]
  - GENERALISED OEDEMA [None]
  - PNEUMONIA [None]
  - PULMONARY CONGESTION [None]
  - RIGHT VENTRICULAR FAILURE [None]
